FAERS Safety Report 15829768 (Version 1)
Quarter: 2019Q1

REPORT INFORMATION
  Report Type: Spontaneous
  Country: US (occurrence: US)
  Receive Date: 20190115
  Receipt Date: 20190115
  Transmission Date: 20190417
  Serious: No
  Sender: FDA-Public Use
  Company Number: US-ALLERGAN-1852780US

PATIENT
  Sex: Male

DRUGS (4)
  1. OPCON-A [Concomitant]
     Active Substance: NAPHAZOLINE HYDROCHLORIDE\PHENIRAMINE MALEATE
     Indication: EYE ALLERGY
     Dosage: UNK
     Route: 047
  2. RESTASIS [Suspect]
     Active Substance: CYCLOSPORINE
     Indication: EYE ALLERGY
     Dosage: 2 GTT, BID
     Route: 047
  3. ZADITOR [Concomitant]
     Active Substance: KETOTIFEN FUMARATE
     Indication: EYE ALLERGY
     Dosage: UNK
     Route: 047
  4. UNKNOWN ALLERGY MEDICATION [Concomitant]
     Indication: EYE ALLERGY
     Dosage: UNK
     Route: 048

REACTIONS (1)
  - Off label use [Unknown]
